FAERS Safety Report 6220333-6 (Version None)
Quarter: 2009Q2

REPORT INFORMATION
  Report Type: 
  Country: None (occurrence: None)
  Receive Date: 20090610
  Receipt Date: 20090528
  Transmission Date: 20091009
  Serious: Yes (Other)
  Sender: FDA-Public Use
  Company Number: US-PFIZER INC-2006084143

PATIENT
  Sex: Female
  Weight: 67 kg

DRUGS (8)
  1. PROVERA [Suspect]
     Indication: HORMONE REPLACEMENT THERAPY
     Route: 048
  2. MEDROXYPROGESTERONE ACETATE TABLET [Suspect]
     Indication: HORMONE REPLACEMENT THERAPY
     Route: 048
  3. PREMARIN [Suspect]
     Indication: HORMONE REPLACEMENT THERAPY
     Route: 065
  4. CYCRIN [Suspect]
     Indication: HORMONE REPLACEMENT THERAPY
     Route: 065
  5. MEDROXYPROGESTERONE ACETATE [Suspect]
     Indication: HORMONE REPLACEMENT THERAPY
     Route: 065
  6. CARDIZEM [Concomitant]
     Indication: BLOOD PRESSURE
     Dosage: UNK
     Route: 065
     Dates: start: 19900101
  7. CARDIZEM [Concomitant]
     Indication: ANGINA PECTORIS
  8. FOSAMAX [Concomitant]
     Indication: OSTEOPENIA
     Dosage: UNK
     Route: 065
     Dates: start: 19980101, end: 20060101

REACTIONS (1)
  - BREAST CANCER [None]
